FAERS Safety Report 13840204 (Version 1)
Quarter: 2017Q3

REPORT INFORMATION
  Report Type: Spontaneous
  Country: US (occurrence: US)
  Receive Date: 20170807
  Receipt Date: 20170807
  Transmission Date: 20171127
  Serious: Yes (Other)
  Sender: FDA-Public Use
  Company Number: US-GLAXOSMITHKLINE-US2017121462

PATIENT
  Age: 86 Year
  Sex: Female

DRUGS (6)
  1. SPIRIVA [Concomitant]
     Active Substance: TIOTROPIUM BROMIDE MONOHYDRATE
  2. OXYCODONE [Concomitant]
     Active Substance: OXYCODONE
  3. BREO ELLIPTA [Suspect]
     Active Substance: FLUTICASONE FUROATE\VILANTEROL TRIFENATATE
     Indication: BRONCHITIS
  4. BREO ELLIPTA [Suspect]
     Active Substance: FLUTICASONE FUROATE\VILANTEROL TRIFENATATE
     Indication: ASTHMA
     Dosage: 1 PUFF(S), QD
     Route: 055
     Dates: start: 20170721
  5. ADVAIR DISKUS [Suspect]
     Active Substance: FLUTICASONE PROPIONATE\SALMETEROL XINAFOATE
     Indication: PRODUCT USED FOR UNKNOWN INDICATION
     Dosage: 1 PUFF(S), QD
     Route: 055
     Dates: end: 201706
  6. MONTELUKAST [Concomitant]
     Active Substance: MONTELUKAST SODIUM

REACTIONS (14)
  - Dysstasia [Unknown]
  - Nocturnal dyspnoea [Not Recovered/Not Resolved]
  - Anosmia [Recovering/Resolving]
  - Malaise [Unknown]
  - Choking [Not Recovered/Not Resolved]
  - Ageusia [Recovering/Resolving]
  - Breath sounds abnormal [Unknown]
  - Pneumonia [Unknown]
  - Underdose [Unknown]
  - Insomnia [Not Recovered/Not Resolved]
  - Dyspnoea [Not Recovered/Not Resolved]
  - Drug ineffective [Not Recovered/Not Resolved]
  - Cough [Not Recovered/Not Resolved]
  - Secretion discharge [Unknown]

NARRATIVE: CASE EVENT DATE: 20170803
